FAERS Safety Report 21047086 (Version 6)
Quarter: 2022Q3

REPORT INFORMATION
  Report Type: Report from Study
  Country: IT (occurrence: IT)
  Receive Date: 20220706
  Receipt Date: 20220828
  Transmission Date: 20221027
  Serious: Yes (Hospitalization)
  Sender: FDA-Public Use
  Company Number: IT-NOVARTISPH-NVSC2022IT150324

PATIENT
  Age: 78 Year
  Sex: Female
  Weight: 56 kg

DRUGS (4)
  1. RIBOCICLIB [Suspect]
     Active Substance: RIBOCICLIB
     Indication: Breast cancer
     Dosage: 4 WEEKS-CYCLE (3 WEEKS OF TREATMENT FOLLOWED BY 1 WEEK OFF)
     Route: 048
     Dates: start: 20220523, end: 20220613
  2. LETROZOLE [Suspect]
     Active Substance: LETROZOLE
     Indication: Breast cancer
     Dosage: UNK
     Route: 048
     Dates: start: 20220523, end: 20220628
  3. FUROSEMIDE [Concomitant]
     Active Substance: FUROSEMIDE
     Indication: Oedema
     Dosage: 25 MG, BID (X2/DIL)
     Route: 048
     Dates: start: 20220502
  4. LEVOTHYROXINE [Concomitant]
     Active Substance: LEVOTHYROXINE
     Indication: Hypothyroidism
     Dosage: 50-75 MCG (75 MCG 4 DAYS/WEEK AND 50 MCG 3 DAYS/WEEK)
     Route: 048
     Dates: start: 1995

REACTIONS (2)
  - Atrial fibrillation [Recovered/Resolved with Sequelae]
  - Cardiac failure [Recovered/Resolved with Sequelae]

NARRATIVE: CASE EVENT DATE: 20220627
